FAERS Safety Report 6596646-5 (Version None)
Quarter: 2010Q1

REPORT INFORMATION
  Report Type: 
  Country: None (occurrence: None)
  Receive Date: 20100223
  Receipt Date: 20100209
  Transmission Date: 20100710
  Serious: Yes (Death)
  Sender: FDA-Public Use
  Company Number: US-B.I. PHARMACEUTICALS,INC./RIDGEFIELD-2010-DE-01026GD

PATIENT
  Age: 5 Year
  Sex: Male

DRUGS (3)
  1. CLONIDINE [Suspect]
     Route: 048
  2. AMPHETAMINE SULFATE [Suspect]
     Route: 048
  3. MIRTAZAPINE [Suspect]
     Route: 048

REACTIONS (1)
  - DEATH [None]
